FAERS Safety Report 12502078 (Version 2)
Quarter: 2016Q2

REPORT INFORMATION
  Report Type: Spontaneous
  Country: US (occurrence: US)
  Receive Date: 20160627
  Receipt Date: 20160630
  Transmission Date: 20160815
  Serious: Yes (Death)
  Sender: FDA-Public Use
  Company Number: US-B.I. PHARMACEUTICALS,INC./RIDGEFIELD-2016-BI-40261BP

PATIENT
  Age: 79 Year
  Sex: Male

DRUGS (1)
  1. SPIRIVA [Suspect]
     Active Substance: TIOTROPIUM BROMIDE MONOHYDRATE
     Indication: CHRONIC OBSTRUCTIVE PULMONARY DISEASE
     Dosage: 18 MCG
     Route: 065

REACTIONS (13)
  - Respiratory failure [Fatal]
  - Hypokalaemia [Fatal]
  - Pneumonia aspiration [Fatal]
  - Eating disorder [Unknown]
  - Candida infection [Unknown]
  - Atrial fibrillation [Fatal]
  - Parkinson^s disease [Fatal]
  - Drug level increased [Unknown]
  - Sinusitis [Unknown]
  - Arterial disorder [Unknown]
  - Dysphagia [Fatal]
  - Hypoxia [Fatal]
  - Sepsis [Fatal]

NARRATIVE: CASE EVENT DATE: 201604
